FAERS Safety Report 12839152 (Version 1)
Quarter: 2016Q4

REPORT INFORMATION
  Report Type: Spontaneous
  Country: US (occurrence: US)
  Receive Date: 20161012
  Receipt Date: 20161012
  Transmission Date: 20170207
  Serious: No
  Sender: FDA-Public Use
  Company Number: US-PERRIGO-15US011237

PATIENT
  Sex: Male

DRUGS (2)
  1. NICOTINE POLACRILEX [Suspect]
     Active Substance: NICOTINE
     Dosage: 4 MG, AFTER MEALS AND BEFORE BEDTIME
     Route: 002
  2. NICOTINE POLACRILEX [Suspect]
     Active Substance: NICOTINE
     Indication: SMOKING CESSATION THERAPY
     Dosage: 4 MG, ONE PIECE AFTER ANOTHER
     Route: 002

REACTIONS (5)
  - Glossitis [Recovered/Resolved]
  - Glossodynia [Recovered/Resolved]
  - Inappropriate schedule of drug administration [Recovered/Resolved]
  - Nicotine dependence [Unknown]
  - Gingival pain [Recovered/Resolved]
